FAERS Safety Report 7039168-X (Version None)
Quarter: 2010Q4

REPORT INFORMATION
  Report Type: 
  Country: None (occurrence: None)
  Receive Date: 20101012
  Receipt Date: 20101007
  Transmission Date: 20110411
  Serious: Yes (Death)
  Sender: FDA-Public Use
  Company Number: PHHY2010CA59890

PATIENT
  Sex: Female

DRUGS (2)
  1. CLOZARIL [Suspect]
     Indication: SCHIZOAFFECTIVE DISORDER
     Dosage: 50 MG QAM AND 350 MG QPM
     Dates: start: 19920719
  2. CLOZARIL [Suspect]
     Indication: TARDIVE DYSKINESIA

REACTIONS (1)
  - MYOCARDIAL INFARCTION [None]
